FAERS Safety Report 14919105 (Version 1)
Quarter: 2018Q2

REPORT INFORMATION
  Report Type: Spontaneous
  Country: DE (occurrence: DE)
  Receive Date: 20180521
  Receipt Date: 20180521
  Transmission Date: 20180711
  Serious: Yes (Death, Hospitalization)
  Sender: FDA-Public Use
  Company Number: DE-WEST-WARD PHARMACEUTICALS CORP.-DE-H14001-18-03564

PATIENT
  Age: 48 Year
  Sex: Male
  Weight: 125 kg

DRUGS (6)
  1. IRINOTECAN [Suspect]
     Active Substance: IRINOTECAN
     Indication: COLON CANCER METASTATIC
     Dosage: DAILY DOSE: 360 MG MILLGRAM(S) EVERY 2 WEEKS
     Route: 042
     Dates: start: 20140311, end: 20140626
  2. 5-FLUOROURACIL [Suspect]
     Active Substance: FLUOROURACIL
     Indication: COLON CANCER METASTATIC
     Dosage: DAILY DOSE: 6000 MG MILLGRAM(S) EVERY 2 WEEKS
     Route: 041
     Dates: start: 20140114, end: 20140626
  3. OXALIPLATIN. [Concomitant]
     Active Substance: OXALIPLATIN
     Indication: COLON CANCER METASTATIC
     Dosage: DAILY DOSE: 170 MG MILLGRAM(S) EVERY 2 WEEKS
     Route: 042
     Dates: start: 20140114, end: 20140225
  4. AVASTIN [Suspect]
     Active Substance: BEVACIZUMAB
     Indication: COLON CANCER METASTATIC
     Dosage: DAILY DOSE: 625 MG MILLGRAM(S) EVERY 2 WEEKS
     Route: 042
     Dates: start: 20140128, end: 20140715
  5. FOLINIC ACID [Suspect]
     Active Substance: LEUCOVORIN
     Indication: COLON CANCER METASTATIC
     Dosage: DAILY DOSE: 800 MG MILLGRAM(S) EVERY 2 WEEKS
     Route: 042
     Dates: start: 20140114, end: 20140626
  6. NALOXONE/TILIDINE [Concomitant]
     Active Substance: NALOXONE HYDROCHLORIDE\TILIDINE HYDROCHLORIDE
     Indication: PRODUCT USED FOR UNKNOWN INDICATION
     Dosage: DAILY DOSE: 100 MG MILLGRAM(S) EVERY DAYS
     Route: 048
     Dates: start: 20140303, end: 20140307

REACTIONS (7)
  - Pulmonary embolism [Recovering/Resolving]
  - Deep vein thrombosis [Recovering/Resolving]
  - Renal failure [Fatal]
  - Thrombosis [Recovered/Resolved]
  - Cardiac failure [Recovered/Resolved with Sequelae]
  - Jaundice [Fatal]
  - Back pain [Unknown]

NARRATIVE: CASE EVENT DATE: 20140227
